FAERS Safety Report 5159372-5 (Version None)
Quarter: 2006Q4

REPORT INFORMATION
  Report Type: 
  Country: None (occurrence: None)
  Receive Date: 20061120
  Receipt Date: 20061103
  Transmission Date: 20070319
  Serious: No
  Sender: FDA-Public Use
  Company Number: TPA2006A01984

PATIENT
  Age: 57 Year
  Sex: Female
  Weight: 66.2252 kg

DRUGS (3)
  1. ROZEREM [Suspect]
     Indication: INSOMNIA
     Dosage: 4 MG, HS, PER ORAL
     Route: 048
     Dates: start: 20061029, end: 20061030
  2. LEXAPRO [Concomitant]
  3. KLONOPIN [Concomitant]

REACTIONS (7)
  - CONDITION AGGRAVATED [None]
  - FEAR [None]
  - HEART RATE INCREASED [None]
  - INCORRECT DOSE ADMINISTERED [None]
  - INITIAL INSOMNIA [None]
  - NIGHTMARE [None]
  - TREATMENT NONCOMPLIANCE [None]
